FAERS Safety Report 6914275-8 (Version None)
Quarter: 2010Q3

REPORT INFORMATION
  Report Type: 
  Country: None (occurrence: None)
  Receive Date: 20100809
  Receipt Date: 20100803
  Transmission Date: 20110219
  Serious: Yes (Hospitalization)
  Sender: FDA-Public Use
  Company Number: B0650990A

PATIENT
  Age: 62 Year
  Sex: Male

DRUGS (3)
  1. AUGMENTIN '125' [Suspect]
     Indication: PRODUCT USED FOR UNKNOWN INDICATION
     Dosage: 2UNIT PER DAY
     Route: 048
     Dates: start: 20100204, end: 20100204
  2. KETOPROFEN [Suspect]
     Indication: PRODUCT USED FOR UNKNOWN INDICATION
     Dosage: 150MG PER DAY
     Route: 048
     Dates: start: 20100204
  3. IBUPROFEN + ARGININE [Suspect]
     Indication: PRODUCT USED FOR UNKNOWN INDICATION
     Dosage: 3UNIT CUMULATIVE DOSE
     Route: 048
     Dates: start: 20100201, end: 20100202

REACTIONS (4)
  - ANALGESIC ASTHMA SYNDROME [None]
  - ANGIOEDEMA [None]
  - LIP OEDEMA [None]
  - SWELLING FACE [None]
